FAERS Safety Report 5236106-7 (Version None)
Quarter: 2007Q1

REPORT INFORMATION
  Report Type: 
  Country: None (occurrence: None)
  Receive Date: 20061208
  Receipt Date: 20060428
  Transmission Date: 20070707
  Serious: Yes (Other)
  Sender: FDA-Public Use
  Company Number: 2006UW07763

PATIENT
  Age: 77 Year
  Sex: Female
  Weight: 56.699 kg

DRUGS (6)
  1. CRESTOR [Suspect]
     Indication: BLOOD CHOLESTEROL INCREASED
     Dosage: 10 MG PO
     Route: 048
     Dates: start: 20051101, end: 20060101
  2. FOSAMAX [Concomitant]
  3. VERAPAMIL [Concomitant]
  4. ATENOLOL [Concomitant]
  5. CALCIUM [Concomitant]
  6. VITAMIN [Concomitant]

REACTIONS (3)
  - ASTHENIA [None]
  - DIZZINESS [None]
  - HEART RATE IRREGULAR [None]
